FAERS Safety Report 4349474-5 (Version None)
Quarter: 2004Q2

REPORT INFORMATION
  Report Type: 
  Country: None (occurrence: None)
  Receive Date: 20040426
  Receipt Date: 20040329
  Transmission Date: 20050107
  Serious: Yes (Hospitalization)
  Sender: FDA-Public Use
  Company Number: 04P-062-0253861-00

PATIENT
  Age: 46 Year
  Sex: Male
  Weight: 80 kg

DRUGS (1)
  1. HUMIRA [Suspect]
     Indication: RHEUMATOID ARTHRITIS
     Dosage: 1 IN 2 WK SUBCUTANEOUS
     Route: 058
     Dates: start: 20031126, end: 20040129

REACTIONS (3)
  - BURSITIS [None]
  - INFECTION [None]
  - LIMB INJURY [None]
